FAERS Safety Report 5619161-1 (Version None)
Quarter: 2008Q1

REPORT INFORMATION
  Report Type: 
  Country: None (occurrence: None)
  Receive Date: 20080204
  Receipt Date: 20071217
  Transmission Date: 20080703
  Serious: Yes (Hospitalization, Other)
  Sender: FDA-Public Use
  Company Number: A-US2006-12724

PATIENT
  Age: 74 Year
  Sex: Female
  Weight: 78.5 kg

DRUGS (10)
  1. TRACLEER [Suspect]
     Indication: PULMONARY HYPERTENSION
     Dosage: 125 MG, BID, ORAL; 62.5 MG, BID, ORAL
     Route: 048
     Dates: start: 20060302, end: 20060426
  2. TRACLEER [Suspect]
     Indication: PULMONARY HYPERTENSION
     Dosage: 125 MG, BID, ORAL; 62.5 MG, BID, ORAL
     Route: 048
     Dates: start: 20060427, end: 20060514
  3. EZETIMIBE [Concomitant]
  4. LEXAPRO [Concomitant]
  5. WARFARIN SODIUM [Concomitant]
  6. FUROSEMIDE [Concomitant]
  7. METOPROLOL TARTRATE [Concomitant]
  8. POTASSIUM CHLORIDE [Concomitant]
  9. ROPINIROLE HYDROCHLORIDE (ROPINROLE HYDROCHLORIDE) [Concomitant]
  10. VENTAVIS [Concomitant]

REACTIONS (36)
  - ABDOMINAL DISTENSION [None]
  - ABSCESS [None]
  - ABSCESS LIMB [None]
  - ALANINE AMINOTRANSFERASE INCREASED [None]
  - ANXIETY [None]
  - ASPARTATE AMINOTRANSFERASE INCREASED [None]
  - BLISTER [None]
  - BLOOD ALKALINE PHOSPHATASE INCREASED [None]
  - BLOOD BILIRUBIN INCREASED [None]
  - CELLULITIS [None]
  - COR PULMONALE [None]
  - DIARRHOEA [None]
  - DRUG HYPERSENSITIVITY [None]
  - DRY MOUTH [None]
  - DYSPNOEA EXERTIONAL [None]
  - EOSINOPHIL COUNT INCREASED [None]
  - ESCHAR [None]
  - FLUID RETENTION [None]
  - FLUSHING [None]
  - HEADACHE [None]
  - HEPATOTOXICITY [None]
  - HYPERKERATOSIS [None]
  - LIP SWELLING [None]
  - LIVER FUNCTION TEST ABNORMAL [None]
  - OEDEMA PERIPHERAL [None]
  - PETECHIAE [None]
  - PITTING OEDEMA [None]
  - PULMONARY OEDEMA [None]
  - RESTLESS LEGS SYNDROME [None]
  - SKIN GRAFT [None]
  - SWELLING FACE [None]
  - TENDERNESS [None]
  - VASCULITIS [None]
  - WEIGHT INCREASED [None]
  - WOUND [None]
  - WOUND SECRETION [None]
